FAERS Safety Report 10395935 (Version 1)
Quarter: 2014Q1

REPORT INFORMATION
  Report Type: Spontaneous
  Country: US (occurrence: None)
  Receive Date: 20130724
  Receipt Date: 20130724
  Transmission Date: 20141002
  Serious: Yes (Other)
  Sender: FDA-Public Use
  Company Number: PHEH2012US014787

PATIENT
  Age: 38 Year
  Sex: Female
  Weight: 44 kg

DRUGS (4)
  1. GILENYA (FTY) CAPSULE, 0.5MG [Suspect]
     Indication: MULTIPLE SCLEROSIS
     Route: 048
     Dates: start: 20120109, end: 20120726
  2. SYNTHROID (LEVOTHYROXINE SODIUM) [Concomitant]
  3. BACLOFEN [Concomitant]
  4. VASOFLEX D1 (DIOSMIN, HESPERIDIN) [Concomitant]

REACTIONS (1)
  - Headache [None]
